FAERS Safety Report 9767915 (Version 1)
Quarter: 2013Q3

REPORT INFORMATION
  Report Type: Spontaneous
  Country: US (occurrence: None)
  Receive Date: 20130827
  Receipt Date: 20130827
  Transmission Date: 20140515
  Serious: Yes (Hospitalization, Other)
  Sender: FDA-Public Use
  Company Number: 163-21880-13054733

PATIENT
  Age: 77 Year
  Sex: Female
  Weight: 63.5 kg

DRUGS (7)
  1. REVLIMID (LENALIDOMIDE) (15 MILLIGRAM, CAPSULES) [Suspect]
     Indication: PLASMA CELL MYELOMA
     Route: 048
     Dates: start: 20110811
  2. ARANESP (DARBEPOETIN ALFA) (UNKNOWN) [Concomitant]
  3. ORPHENADRINE ER (TABLETS) [Concomitant]
  4. SYNTHROID (LEVOTHYROXINE SODIUM) (UNKNOWN) [Concomitant]
  5. DEXAMETHASONE INTENSOL (DEXAMETHASONE) (UNKNOWN) [Concomitant]
  6. STOOL SOFTENER (DOCUSATE SODIUM) (UNKNOWN) [Concomitant]
  7. PROZAC (FLUOXETINE HYDROCHLORIDE) (UNKNOWN) [Concomitant]

REACTIONS (20)
  - Pulmonary oedema [None]
  - Fall [None]
  - Contusion [None]
  - Diarrhoea [None]
  - Ageusia [None]
  - Angiopathy [None]
  - Upper limb fracture [None]
  - Ligament rupture [None]
  - Heart rate decreased [None]
  - Loss of consciousness [None]
  - Dehydration [None]
  - Vomiting [None]
  - Gait disturbance [None]
  - Fatigue [None]
  - Constipation [None]
  - Full blood count decreased [None]
  - Hypotension [None]
  - Aphonia [None]
  - Stomatitis [None]
  - Anaemia [None]
